FAERS Safety Report 23386952 (Version 5)
Quarter: 2025Q1

REPORT INFORMATION
  Report Type: Report from Study
  Country: CA (occurrence: CA)
  Receive Date: 20240110
  Receipt Date: 20250113
  Transmission Date: 20250409
  Serious: Yes (Death, Hospitalization, Other)
  Sender: SANDOZ
  Company Number: CA-002147023-NVSC2023CA022264

PATIENT
  Age: 68 Year
  Sex: Male

DRUGS (2)
  1. HYRIMOZ [Suspect]
     Active Substance: ADALIMUMAB-ADAZ
     Indication: Ankylosing spondylitis
     Dosage: 40 MG / 0.8 ML, Q2W SOLUTION FOR INJECTION IN PRE-FILLED PEN
     Route: 058
     Dates: start: 20220501
  2. HYRIMOZ [Suspect]
     Active Substance: ADALIMUMAB-ADAZ
     Dosage: 40; EVERY TWO WEEKS (PRE-FILLED SYRINGE)
     Route: 058

REACTIONS (7)
  - Death [Fatal]
  - Cardiovascular insufficiency [Unknown]
  - Accident [Unknown]
  - General physical health deterioration [Unknown]
  - Weight decreased [Unknown]
  - Feeling abnormal [Unknown]
  - Product use complaint [Unknown]

NARRATIVE: CASE EVENT DATE: 20241211
